FAERS Safety Report 5341983-5 (Version None)
Quarter: 2007Q2

REPORT INFORMATION
  Report Type: 
  Country: None (occurrence: None)
  Receive Date: 20070530
  Receipt Date: 20070530
  Transmission Date: 20071010
  Serious: Yes (Hospitalization)
  Sender: FDA-Public Use
  Company Number: None

PATIENT
  Sex: Female
  Weight: 70 kg

DRUGS (10)
  1. CARBOPLATIN [Suspect]
     Dosage: 677 MG
  2. TAXOL [Suspect]
     Dosage: 320 MG
  3. ADVAIR DISKUS 100/50 [Concomitant]
  4. ANTIHISTAMINES (P.R.N.) [Concomitant]
  5. ATENOLOL [Concomitant]
  6. ATIVAN [Concomitant]
  7. BECONASE [Concomitant]
  8. COMPAZINE [Concomitant]
  9. HYDROCHLOROTHIAZIDE [Concomitant]
  10. PAXIL [Concomitant]

REACTIONS (7)
  - BLOOD CULTURE POSITIVE [None]
  - BONE MARROW FAILURE [None]
  - DIARRHOEA [None]
  - ENTEROCOCCAL INFECTION [None]
  - FEBRILE NEUTROPENIA [None]
  - FREQUENT BOWEL MOVEMENTS [None]
  - STREPTOCOCCAL INFECTION [None]
